FAERS Safety Report 5164772-3 (Version None)
Quarter: 2006Q4

REPORT INFORMATION
  Report Type: 
  Country: None (occurrence: None)
  Receive Date: 20061205
  Receipt Date: 20061201
  Transmission Date: 20070319
  Serious: Yes (Other)
  Sender: FDA-Public Use
  Company Number: DE-GLAXOSMITHKLINE-D0051666A

PATIENT
  Age: 29 Year
  Sex: Female
  Weight: 55 kg

DRUGS (5)
  1. ZYBAN [Suspect]
     Dosage: 3600MG SINGLE DOSE
     Route: 048
  2. ALCOHOL [Suspect]
     Route: 048
  3. DIPHENHYDRAMINE HCL [Suspect]
     Dosage: 500MG SINGLE DOSE
     Route: 048
  4. OFLOXACIN [Suspect]
     Dosage: 2000MG SINGLE DOSE
     Route: 048
  5. ACETAMINOPHEN [Suspect]
     Dosage: 500MG SINGLE DOSE
     Route: 048

REACTIONS (3)
  - AGITATION [None]
  - INTENTIONAL OVERDOSE [None]
  - SUICIDE ATTEMPT [None]
